FAERS Safety Report 8422107-4 (Version None)
Quarter: 2012Q2

REPORT INFORMATION
  Report Type: 
  Country: None (occurrence: None)
  Receive Date: 20120608
  Receipt Date: 20120529
  Transmission Date: 20120825
  Serious: Yes (Other)
  Sender: FDA-Public Use
  Company Number: AR-AMGEN-ARGSP2011038565

PATIENT
  Age: 47 Year
  Sex: Female

DRUGS (4)
  1. METHOTREXATE [Concomitant]
     Dosage: UNK
  2. ENBREL [Suspect]
     Indication: RHEUMATOID ARTHRITIS
     Dosage: 50 MG, WEEKLY
     Route: 058
     Dates: start: 20050520, end: 20120401
  3. T4 [Concomitant]
     Dosage: UNK
  4. DICLOFENAC SODIUM [Concomitant]
     Dosage: UNK

REACTIONS (7)
  - DRUG INEFFECTIVE [None]
  - INFLAMMATION [None]
  - RESPIRATORY TRACT INFECTION [None]
  - HYPERSENSITIVITY [None]
  - NASOPHARYNGITIS [None]
  - ARTHRITIS [None]
  - EAR INFECTION [None]
